FAERS Safety Report 7907438-6 (Version None)
Quarter: 2011Q4

REPORT INFORMATION
  Report Type: 
  Country: None (occurrence: None)
  Receive Date: 20111110
  Receipt Date: 20111028
  Transmission Date: 20120403
  Serious: Yes (Death)
  Sender: FDA-Public Use
  Company Number: IL-MYLANLABS-2011S1022786

PATIENT
  Age: 51 Year
  Sex: Female

DRUGS (13)
  1. CAPECITABINE [Suspect]
     Indication: BREAST CANCER METASTATIC
     Route: 065
  2. FENTANYL [Concomitant]
     Route: 061
  3. FULVESTRANT [Suspect]
     Indication: BREAST CANCER METASTATIC
     Route: 065
  4. VINORELBINE [Suspect]
     Indication: BREAST CANCER METASTATIC
     Route: 065
  5. OMEPRAZOLE [Concomitant]
     Route: 065
  6. MEGESTROL ACETATE [Suspect]
     Indication: BREAST CANCER METASTATIC
     Route: 065
  7. FUROSEMIDE [Concomitant]
     Route: 065
  8. LETROZOLE [Suspect]
     Indication: BREAST CANCER METASTATIC
     Route: 065
  9. EXEMESTANE [Suspect]
     Indication: BREAST CANCER METASTATIC
     Route: 065
  10. GEMCITABINE [Suspect]
     Indication: BREAST CANCER METASTATIC
     Route: 065
  11. MITOXANTRONE [Suspect]
     Indication: BREAST CANCER METASTATIC
     Route: 065
  12. PACLITAXEL [Suspect]
     Indication: BREAST CANCER METASTATIC
     Route: 065
  13. MITOMYCIN [Suspect]
     Indication: BREAST CANCER METASTATIC
     Route: 065

REACTIONS (2)
  - HEPATIC CIRRHOSIS [None]
  - HEPATIC FAILURE [None]
